FAERS Safety Report 17562095 (Version 45)
Quarter: 2023Q4

REPORT INFORMATION
  Report Type: Spontaneous
  Country: IL (occurrence: IL)
  Receive Date: 20200319
  Receipt Date: 20231020
  Transmission Date: 20240109
  Serious: Yes (Other)
  Sender: FDA-Public Use
  Company Number: IL-PFIZER INC-2018497680

PATIENT
  Age: 64 Year
  Sex: Male
  Weight: 72 kg

DRUGS (34)
  1. ELELYSO [Suspect]
     Active Substance: TALIGLUCERASE ALFA
     Indication: Gaucher^s disease
     Dosage: 1000/1200 UNITS ALTERNATELY TWICE A MONTH
     Route: 042
     Dates: start: 20181118
  2. ELELYSO [Suspect]
     Active Substance: TALIGLUCERASE ALFA
     Dosage: 1000/1200 UNITS ALTERNATELY ONCE A MONTH
     Route: 042
  3. ELELYSO [Suspect]
     Active Substance: TALIGLUCERASE ALFA
     Dosage: 1000/1200 UNITS ALTERNATELY ONCE A MONTH
     Route: 042
  4. ELELYSO [Suspect]
     Active Substance: TALIGLUCERASE ALFA
     Dosage: 1000/1200 UNITS ALTERNATELY TWICE A MONTH
     Route: 042
  5. ELELYSO [Suspect]
     Active Substance: TALIGLUCERASE ALFA
     Dosage: 1000/1200 UNITS ALTERNATELY TWICE A MONTH
     Route: 042
  6. ELELYSO [Suspect]
     Active Substance: TALIGLUCERASE ALFA
     Dosage: 1000/1200 UNITS ALTERNATELY TWICE A MONTH
     Route: 042
  7. ELELYSO [Suspect]
     Active Substance: TALIGLUCERASE ALFA
     Dosage: 1000/1200 UNITS ALTERNATELY TWICE A MONTH
     Route: 042
  8. ELELYSO [Suspect]
     Active Substance: TALIGLUCERASE ALFA
     Dosage: 1000/1200 UNITS ALTERNATELY TWICE A MONTH
     Route: 042
  9. ELELYSO [Suspect]
     Active Substance: TALIGLUCERASE ALFA
     Dosage: 1000/1200 UNITS ALTERNATELY TWICE A MONTH
     Route: 042
  10. ELELYSO [Suspect]
     Active Substance: TALIGLUCERASE ALFA
     Dosage: 1000/1200 UNITS ALTERNATELY TWICE A MONTH
     Route: 042
  11. ELELYSO [Suspect]
     Active Substance: TALIGLUCERASE ALFA
     Dosage: 1000/1200 UNITS ALTERNATELY TWICE A MONTH
     Route: 042
  12. ELELYSO [Suspect]
     Active Substance: TALIGLUCERASE ALFA
     Dosage: 1000/1200 UNITS ALTERNATELY TWICE A MONTH
     Route: 042
  13. ELELYSO [Suspect]
     Active Substance: TALIGLUCERASE ALFA
     Dosage: 1000/1200 UNITS ALTERNATELY TWICE A MONTH
     Route: 042
  14. ELELYSO [Suspect]
     Active Substance: TALIGLUCERASE ALFA
     Dosage: 1000/1200 UNITS ALTERNATELY TWICE A MONTH
     Route: 042
  15. ELELYSO [Suspect]
     Active Substance: TALIGLUCERASE ALFA
     Dosage: 1000/1200 UNITS ALTERNATELY TWICE A MONTH
     Route: 042
  16. ELELYSO [Suspect]
     Active Substance: TALIGLUCERASE ALFA
     Dosage: 1000/1200 UNITS ALTERNATELY TWICE A MONTH
     Route: 042
  17. ELELYSO [Suspect]
     Active Substance: TALIGLUCERASE ALFA
     Dosage: 1000/1200 UNITS ALTERNATELY TWICE A MONTH
     Route: 042
  18. ELELYSO [Suspect]
     Active Substance: TALIGLUCERASE ALFA
     Dosage: 1000/1200 UNITS ALTERNATELY TWICE A MONTH
     Route: 042
  19. ELELYSO [Suspect]
     Active Substance: TALIGLUCERASE ALFA
     Dosage: 1000/1200 UNITS ALTERNATELY TWICE A MONTH
     Route: 042
  20. ELELYSO [Suspect]
     Active Substance: TALIGLUCERASE ALFA
     Dosage: 1000/1200 UNITS ALTERNATELY TWICE A MONTH
     Route: 042
     Dates: start: 20220410
  21. ELELYSO [Suspect]
     Active Substance: TALIGLUCERASE ALFA
     Dosage: 1000/1200 UNITS ALTERNATELY TWICE A MONTH, 5/6 VIALS  ALTERNATELY TWICE THIS MONTH
     Route: 042
     Dates: start: 202207
  22. ELELYSO [Suspect]
     Active Substance: TALIGLUCERASE ALFA
     Dosage: 6VIALS / 1200IU
     Route: 042
  23. ELELYSO [Suspect]
     Active Substance: TALIGLUCERASE ALFA
     Dosage: 11 VIALS MONTHLY, 5/6 ALTERNATELY TWICE A MONTH
     Route: 042
  24. ELELYSO [Suspect]
     Active Substance: TALIGLUCERASE ALFA
     Dosage: 200IUX5/6VIALS EVERY TWO WEEKS
     Route: 042
  25. ELELYSO [Suspect]
     Active Substance: TALIGLUCERASE ALFA
     Dosage: 200IUX5/6VIALS INTERMITTENTLY
     Route: 042
  26. ELELYSO [Suspect]
     Active Substance: TALIGLUCERASE ALFA
     Dosage: 200 IU, INFUSION TWICE MONTHLY OF 200 UNITS
     Route: 042
  27. BISOPROLOL FUMARATE [Concomitant]
     Active Substance: BISOPROLOL FUMARATE
     Indication: Hypertension
     Dosage: UNK
     Dates: start: 201708
  28. CLOPIDOGREL BISULFATE [Concomitant]
     Active Substance: CLOPIDOGREL BISULFATE
     Indication: Thrombosis prophylaxis
     Dosage: UNK
  29. CRESTOR [Concomitant]
     Active Substance: ROSUVASTATIN CALCIUM
     Dosage: UNK
  30. RAMIPRIL [Concomitant]
     Active Substance: RAMIPRIL
     Dosage: UNK
  31. VITAMIN D [Concomitant]
     Active Substance: VITAMIN D NOS
     Dosage: UNK
  32. CALCIUM [Concomitant]
     Active Substance: CALCIUM
     Dosage: UNK
  33. VITAMIN B12 [Concomitant]
     Active Substance: CYANOCOBALAMIN
     Dosage: UNK UNK, MONTHLY
  34. PLAVIX [Concomitant]
     Active Substance: CLOPIDOGREL BISULFATE
     Dosage: UNK

REACTIONS (18)
  - Muscle spasticity [Recovered/Resolved]
  - Pain in extremity [Recovered/Resolved]
  - Haemorrhage [Recovered/Resolved]
  - Tooth infection [Recovered/Resolved]
  - Arthralgia [Recovered/Resolved]
  - Urinary tract infection [Recovered/Resolved]
  - Platelet count decreased [Recovered/Resolved]
  - Poor venous access [Recovered/Resolved]
  - Hepatic enzyme increased [Recovered/Resolved]
  - Pruritus [Recovered/Resolved]
  - Hypoacusis [Recovered/Resolved]
  - Limb injury [Recovered/Resolved]
  - Off label use [Unknown]
  - Inappropriate schedule of product administration [Unknown]
  - Intentional product misuse [Unknown]
  - COVID-19 [Recovered/Resolved]
  - Intervertebral disc protrusion [Recovered/Resolved]
  - Back pain [Recovered/Resolved]

NARRATIVE: CASE EVENT DATE: 20190722
